FAERS Safety Report 14360864 (Version 3)
Quarter: 2018Q1

REPORT INFORMATION
  Report Type: Report from Study
  Country: None (occurrence: BR)
  Receive Date: 20180107
  Receipt Date: 20180304
  Transmission Date: 20180509
  Serious: Yes (Other)
  Sender: FDA-Public Use
  Company Number: BR-ABBVIE-18K-020-2213601-00

PATIENT
  Age: 19 Year
  Sex: Male
  Weight: 60 kg

DRUGS (5)
  1. MESALAZINE [Concomitant]
     Active Substance: MESALAMINE
     Indication: CROHN^S DISEASE
  2. HUMIRA [Suspect]
     Active Substance: ADALIMUMAB
     Indication: CROHN^S DISEASE
     Dosage: LOADING DOSE, WEEK 0
     Route: 058
     Dates: start: 20171129, end: 20171129
  3. ISONIAZID. [Concomitant]
     Active Substance: ISONIAZID
     Indication: TUBERCULOSIS
  4. HUMIRA [Suspect]
     Active Substance: ADALIMUMAB
     Dosage: LOADING DOSE, WEEK 2
     Route: 058
     Dates: start: 20171213, end: 20171213
  5. HUMIRA [Suspect]
     Active Substance: ADALIMUMAB
     Dosage: MAINTENANCE DOSE
     Route: 058
     Dates: start: 201712, end: 20180109

REACTIONS (7)
  - Pyrexia [Recovered/Resolved]
  - Anal abscess [Not Recovered/Not Resolved]
  - Proctalgia [Not Recovered/Not Resolved]
  - Faeces hard [Not Recovered/Not Resolved]
  - Haematochezia [Recovering/Resolving]
  - Proctalgia [Recovered/Resolved]
  - Syncope [Unknown]

NARRATIVE: CASE EVENT DATE: 201712
